FAERS Safety Report 8150139-2 (Version None)
Quarter: 2012Q1

REPORT INFORMATION
  Report Type: 
  Country: None (occurrence: None)
  Receive Date: 20120220
  Receipt Date: 20120209
  Transmission Date: 20120608
  Serious: No
  Sender: FDA-Public Use
  Company Number: US-BIOGENIDEC-2012BI003329

PATIENT
  Sex: Female

DRUGS (1)
  1. AVONEX [Suspect]
     Indication: MULTIPLE SCLEROSIS
     Route: 030
     Dates: start: 20101025

REACTIONS (17)
  - ENAMEL ANOMALY [None]
  - FIBROMYALGIA [None]
  - TOOTH EXTRACTION [None]
  - FOOD ALLERGY [None]
  - MIGRAINE [None]
  - URTICARIA [None]
  - MEMORY IMPAIRMENT [None]
  - MUSCULOSKELETAL DISORDER [None]
  - MENTAL IMPAIRMENT [None]
  - URINARY RETENTION [None]
  - AMNESIA [None]
  - MALNUTRITION [None]
  - HEADACHE [None]
  - MULTIPLE SCLEROSIS [None]
  - NEURALGIA [None]
  - AGRAPHIA [None]
  - MULTIPLE ALLERGIES [None]
